FAERS Safety Report 11570146 (Version 2)
Quarter: 2015Q3

REPORT INFORMATION
  Report Type: Spontaneous
  Country: US (occurrence: US)
  Receive Date: 20150929
  Receipt Date: 20150930
  Transmission Date: 20151125
  Serious: No
  Sender: FDA-Public Use
  Company Number: US-PFIZER INC-2015323935

PATIENT
  Age: 83 Year
  Sex: Male
  Weight: 68.93 kg

DRUGS (1)
  1. LYRICA [Suspect]
     Active Substance: PREGABALIN
     Indication: NEUROPATHY PERIPHERAL
     Dosage: 25 MG, 1X/DAY

REACTIONS (3)
  - Spinal column stenosis [Unknown]
  - Drug ineffective [Unknown]
  - Intervertebral disc protrusion [Unknown]
